FAERS Safety Report 17874307 (Version 1)
Quarter: 2020Q2

REPORT INFORMATION
  Report Type: Spontaneous
  Country: US (occurrence: US)
  Receive Date: 20200609
  Receipt Date: 20200609
  Transmission Date: 20200714
  Serious: Yes (Other)
  Sender: FDA-Public Use
  Company Number: US-STRIDES ARCOLAB LIMITED-2020SP006754

PATIENT
  Age: 4 Year
  Sex: Female
  Weight: 20 kg

DRUGS (3)
  1. NITROUS OXIDE. [Concomitant]
     Active Substance: NITROUS OXIDE
     Indication: SEDATIVE THERAPY
     Dosage: UNK
     Route: 065
  2. LIDOCAINE. [Suspect]
     Active Substance: LIDOCAINE
     Indication: LOCAL ANAESTHESIA
     Dosage: UNK, SINGLE
     Route: 061
  3. ARTICAINE;EPINEPHRINE [Suspect]
     Active Substance: ARTICAINE\EPINEPHRINE
     Indication: LOCAL ANAESTHESIA
     Dosage: UNK, SINGLE, 4 PERCENT ARTICAINE W/1:100,000 EPINEPHRINE
     Route: 065

REACTIONS (5)
  - Agitation [Unknown]
  - Extrapyramidal disorder [Unknown]
  - Ataxia [Unknown]
  - Dystonia [Unknown]
  - Pain [Unknown]
